FAERS Safety Report 23784273 (Version 1)
Quarter: 2024Q2

REPORT INFORMATION
  Report Type: Spontaneous
  Country: SE (occurrence: SE)
  Receive Date: 20240425
  Receipt Date: 20240425
  Transmission Date: 20240716
  Serious: Yes (Other)
  Sender: FDA-Public Use
  Company Number: None

PATIENT
  Age: 66 Year
  Sex: Female
  Weight: 90 kg

DRUGS (1)
  1. PIRFENIDONE [Suspect]
     Active Substance: PIRFENIDONE
     Indication: Pulmonary fibrosis
     Dosage: TIME INTERVAL: 0.33333333 DAYS: PIRFENIDONE TEVA 1 TABLET 3 TIMES DAILY
     Route: 048
     Dates: start: 20230101, end: 20230308

REACTIONS (3)
  - Abdominal discomfort [Recovering/Resolving]
  - Liver disorder [Recovering/Resolving]
  - Colitis microscopic [Recovering/Resolving]

NARRATIVE: CASE EVENT DATE: 20230201
